FAERS Safety Report 22538949 (Version 1)
Quarter: 2023Q2

REPORT INFORMATION
  Report Type: Spontaneous
  Country: JP (occurrence: JP)
  Receive Date: 20230609
  Receipt Date: 20230609
  Transmission Date: 20230721
  Serious: No
  Sender: FDA-Public Use
  Company Number: JP-UCBSA-2023024771

PATIENT
  Sex: Female

DRUGS (2)
  1. NEUPRO [Suspect]
     Active Substance: ROTIGOTINE
     Indication: Parkinson^s disease
     Dosage: 9 MILLIGRAM
     Route: 062
  2. NEUPRO [Suspect]
     Active Substance: ROTIGOTINE
     Dosage: 18 MILLIGRAM, ONCE DAILY (QD, 9 MG 2 SHEETS
     Route: 062

REACTIONS (2)
  - Application site pruritus [Not Recovered/Not Resolved]
  - Product adhesion issue [Unknown]
